FAERS Safety Report 4384224-8 (Version None)
Quarter: 2004Q2

REPORT INFORMATION
  Report Type: 
  Country: None (occurrence: None)
  Receive Date: 20040624
  Receipt Date: 20040603
  Transmission Date: 20050107
  Serious: Yes (Hospitalization)
  Sender: FDA-Public Use
  Company Number: FR-BRISTOL-MYERS SQUIBB COMPANY-12605721

PATIENT
  Age: 35 Year
  Sex: Male

DRUGS (13)
  1. HYDREA [Suspect]
     Indication: BRAIN NEOPLASM
     Route: 048
     Dates: start: 20040205, end: 20040205
  2. CISPLATIN [Suspect]
     Indication: BRAIN NEOPLASM
     Route: 042
     Dates: start: 20040205, end: 20040205
  3. VINCRISTINE [Suspect]
     Indication: BRAIN NEOPLASM
     Route: 042
     Dates: start: 20040205, end: 20040205
  4. NATULAN [Suspect]
     Indication: BRAIN NEOPLASM
     Route: 048
     Dates: start: 20040205, end: 20040205
  5. ARACYTINE [Suspect]
     Indication: BRAIN NEOPLASM
     Route: 042
     Dates: start: 20040205, end: 20040205
  6. DETICENE [Suspect]
     Indication: BRAIN NEOPLASM
     Route: 042
     Dates: start: 20040205, end: 20040205
  7. BICNU [Concomitant]
     Route: 042
     Dates: start: 20040205, end: 20040205
  8. SOLU-MEDROL [Concomitant]
     Route: 042
     Dates: start: 20040205, end: 20040205
  9. PLITICAN [Concomitant]
     Route: 042
     Dates: start: 20040205, end: 20040205
  10. ZOPHREN [Concomitant]
     Route: 042
     Dates: start: 20040205, end: 20040205
  11. ZOPHREN [Concomitant]
     Route: 048
     Dates: start: 20040206, end: 20040208
  12. NEURONTIN [Concomitant]
  13. URBANYL [Concomitant]
     Dosage: LONG-TERM

REACTIONS (1)
  - URTICARIA [None]
